FAERS Safety Report 25299415 (Version 3)
Quarter: 2025Q3

REPORT INFORMATION
  Report Type: Spontaneous
  Country: IL (occurrence: IL)
  Receive Date: 20250512
  Receipt Date: 20250729
  Transmission Date: 20251020
  Serious: Yes (Hospitalization)
  Sender: AMGEN
  Company Number: IL-AMGEN-ISRSP2025091149

PATIENT
  Sex: Female

DRUGS (1)
  1. PROLIA [Suspect]
     Active Substance: DENOSUMAB
     Indication: Osteoporosis
     Route: 058

REACTIONS (5)
  - Pneumonia [Unknown]
  - Influenza [Unknown]
  - Vitamin D decreased [Unknown]
  - Urinary tract infection [Unknown]
  - Iron deficiency [Unknown]
